FAERS Safety Report 9016522 (Version 1)
Quarter: 2013Q1

REPORT INFORMATION
  Report Type: Spontaneous
  Country: US (occurrence: US)
  Receive Date: 20130116
  Receipt Date: 20130116
  Transmission Date: 20140127
  Serious: Yes (Hospitalization)
  Sender: FDA-Public Use
  Company Number: US-ROCHE-1179640

PATIENT
  Age: 42 Year
  Sex: 0

DRUGS (3)
  1. ACCUTANE [Suspect]
     Indication: ACNE
     Route: 065
  2. ACCUTANE [Suspect]
     Indication: FURUNCLE
  3. REMICADE [Concomitant]

REACTIONS (4)
  - Diarrhoea [Unknown]
  - Crohn^s disease [Unknown]
  - Small intestinal perforation [Unknown]
  - Impaired work ability [Unknown]
